FAERS Safety Report 25891458 (Version 1)
Quarter: 2025Q4

REPORT INFORMATION
  Report Type: Spontaneous
  Country: US (occurrence: None)
  Receive Date: 20251007
  Receipt Date: 20251007
  Transmission Date: 20260117
  Serious: Yes (Death)
  Sender: FDA-CTU
  Company Number: None

PATIENT
  Age: 77 Year
  Sex: Male

DRUGS (16)
  1. DUPIXENT [Suspect]
     Active Substance: DUPILUMAB
     Indication: Asthma
     Dosage: OTHER FREQUENCY : EVERY OTHER WEEK ;?
     Route: 058
     Dates: start: 20150114, end: 20250927
  2. SPIRIVA RESPIMAT 1.25MCG IN 4GM 60D [Concomitant]
  3. THEOPHYLLINE 400MG ER TABLETS [Concomitant]
  4. VALSARTAN S0MG TABLETS [Concomitant]
  5. ZOLPIDEM [Concomitant]
     Active Substance: ZOLPIDEM TARTRATE
  6. ALLOPURINOL 300MG TABLETS [Concomitant]
  7. CLONAZEPAM [Concomitant]
     Active Substance: CLONAZEPAM
  8. dabigatran 150 mg capsules [Concomitant]
  9. dulera 200-5mcg [Concomitant]
  10. FUROSEMIDE [Concomitant]
     Active Substance: FUROSEMIDE
  11. ipratropium 0.03% [Concomitant]
  12. meoclopramide 10mg [Concomitant]
  13. mucinex 600mg er [Concomitant]
  14. PANTOPRAZOLE SODIUM [Concomitant]
     Active Substance: PANTOPRAZOLE SODIUM
  15. PRAVASTATIN [Concomitant]
     Active Substance: PRAVASTATIN
  16. PRIMIDONE 250 MG TABLET [Concomitant]

REACTIONS (1)
  - Death [None]

NARRATIVE: CASE EVENT DATE: 20220927
